FAERS Safety Report 10778961 (Version 6)
Quarter: 2015Q3

REPORT INFORMATION
  Report Type: Spontaneous
  Country: US (occurrence: None)
  Receive Date: 20150206
  Receipt Date: 20150805
  Transmission Date: 20151125
  Serious: Yes (Hospitalization, Other)
  Sender: FDA-Public Use
  Company Number: ADR-2015-00246

PATIENT
  Age: 50 Year
  Sex: Male

DRUGS (4)
  1. FENTANYL INTRATHECAL [Suspect]
     Active Substance: FENTANYL
  2. DILAUDID [Suspect]
     Active Substance: HYDROMORPHONE HYDROCHLORIDE
     Indication: PAIN
  3. COMPOUNDED BACLOFEN INTRATHECAL [Suspect]
     Active Substance: BACLOFEN
     Indication: PAIN
  4. DROPERIDOL INTRATHECAL [Suspect]
     Active Substance: DROPERIDOL

REACTIONS (15)
  - Medical device complication [None]
  - Implant site extravasation [None]
  - Medical device site reaction [None]
  - Implant site erythema [None]
  - Implant site pain [None]
  - Somnolence [None]
  - Fatigue [None]
  - Monocyte count increased [None]
  - Red blood cell sedimentation rate increased [None]
  - Implant site oedema [None]
  - Medical device site haematoma [None]
  - Implant site haematoma [None]
  - Hypertrophic scar [None]
  - Medical device site erythema [None]
  - Medical device site oedema [None]

NARRATIVE: CASE EVENT DATE: 20150114
